FAERS Safety Report 11948093 (Version 1)
Quarter: 2016Q1

REPORT INFORMATION
  Report Type: Spontaneous
  Country: US (occurrence: US)
  Receive Date: 20160125
  Receipt Date: 20160125
  Transmission Date: 20160526
  Serious: No
  Sender: FDA-Public Use
  Company Number: US-PERRIGO-15US007822

PATIENT
  Age: 64 Year
  Sex: Female
  Weight: 97.51 kg

DRUGS (6)
  1. XELJANZ [Suspect]
     Active Substance: TOFACITINIB CITRATE
     Indication: RHEUMATOID ARTHRITIS
     Dosage: 5 MG, BID
     Route: 048
     Dates: end: 20150715
  2. FOLIC ACID. [Concomitant]
     Active Substance: FOLIC ACID
     Indication: SUPPLEMENTATION THERAPY
     Dosage: 1 MG, QD
     Route: 048
  3. LISINOPRIL. [Concomitant]
     Active Substance: LISINOPRIL
     Indication: HYPERTENSION
     Dosage: 1.25 MG, QD
     Route: 048
  4. KETOCONAZOLE RX 2% 2P3 [Suspect]
     Active Substance: KETOCONAZOLE
     Indication: RASH
     Dosage: UNKNOWN, QD TO BID
     Route: 061
     Dates: start: 201506
  5. NYSTATIN RX 100000 U/G 1P6 [Suspect]
     Active Substance: NYSTATIN
     Indication: RASH
     Dosage: UNKNOWN, BID
     Route: 061
     Dates: start: 201506
  6. METHOTREXATE [Suspect]
     Active Substance: METHOTREXATE
     Indication: RHEUMATOID ARTHRITIS
     Dosage: 1 MG, WEEKLY
     Route: 065
     Dates: start: 2014, end: 201506

REACTIONS (2)
  - Rash [None]
  - Condition aggravated [Unknown]

NARRATIVE: CASE EVENT DATE: 201506
